FAERS Safety Report 7000347-9 (Version None)
Quarter: 2010Q3

REPORT INFORMATION
  Report Type: 
  Country: None (occurrence: None)
  Receive Date: 20100920
  Receipt Date: 20100901
  Transmission Date: 20110219
  Serious: No
  Sender: FDA-Public Use
  Company Number: US-BAYER-201032749NA

PATIENT
  Age: 44 Year
  Sex: Female

DRUGS (1)
  1. MAGNEVIST [Suspect]
     Indication: NUCLEAR MAGNETIC RESONANCE IMAGING
     Dates: start: 20100623, end: 20100623

REACTIONS (3)
  - INJECTION SITE MASS [None]
  - INJECTION SITE PAIN [None]
  - SOFT TISSUE INJURY [None]
